FAERS Safety Report 9359038 (Version 1)
Quarter: 2013Q2

REPORT INFORMATION
  Report Type: Spontaneous
  Country: GB (occurrence: GB)
  Receive Date: 20130620
  Receipt Date: 20130620
  Transmission Date: 20140414
  Serious: Yes (Hospitalization, Other)
  Sender: FDA-Public Use
  Company Number: GB-B.I. PHARMACEUTICALS,INC./RIDGEFIELD-2013-UK-01281UK

PATIENT
  Age: 74 Year
  Sex: Female

DRUGS (3)
  1. ATROVENT [Suspect]
     Route: 065
     Dates: start: 20130416
  2. FLUCONAZOLE [Suspect]
     Route: 065
  3. OMEPRAZOLE [Suspect]
     Route: 065

REACTIONS (1)
  - Hypernatraemia [Unknown]
